FAERS Safety Report 12327497 (Version 1)
Quarter: 2016Q2

REPORT INFORMATION
  Report Type: Spontaneous
  Country: US (occurrence: US)
  Receive Date: 20160503
  Receipt Date: 20160503
  Transmission Date: 20160815
  Serious: No
  Sender: FDA-Public Use
  Company Number: US-GLAXOSMITHKLINE-US2016055199

PATIENT
  Sex: Male

DRUGS (2)
  1. NEBULIZED ALBUTEROL [Concomitant]
     Active Substance: ALBUTEROL
  2. VENTOLIN HFA [Suspect]
     Active Substance: ALBUTEROL SULFATE
     Indication: ASTHMA
     Dosage: 2 PUFF(S), PRN
     Route: 055
     Dates: start: 201601

REACTIONS (5)
  - Asthma [Not Recovered/Not Resolved]
  - Suffocation feeling [Unknown]
  - Drug ineffective [Not Recovered/Not Resolved]
  - Overdose [Unknown]
  - Dyspnoea [Not Recovered/Not Resolved]
